FAERS Safety Report 18716366 (Version 1)
Quarter: 2021Q1

REPORT INFORMATION
  Report Type: Report from Study
  Country: IT (occurrence: IT)
  Receive Date: 20210108
  Receipt Date: 20210108
  Transmission Date: 20210419
  Serious: Yes (Other)
  Sender: FDA-Public Use
  Company Number: IT-RECORDATI RARE DISEASES-2104110

PATIENT
  Age: 63 Year
  Sex: Male

DRUGS (11)
  1. ADROVANCE [Concomitant]
     Active Substance: ALENDRONATE SODIUM\CHOLECALCIFEROL
     Route: 048
     Dates: start: 201410
  2. CHOLECALCIFEROL [Concomitant]
     Active Substance: CHOLECALCIFEROL
     Dates: start: 20160428
  3. LEVOTHYROXINE. [Concomitant]
     Active Substance: LEVOTHYROXINE
     Route: 048
     Dates: start: 20130415
  4. MAGALDRATE [Concomitant]
     Active Substance: MAGALDRATE
     Route: 048
     Dates: start: 20141124
  5. SIGNIFOR [Suspect]
     Active Substance: PASIREOTIDE DIASPARTATE
     Indication: ACROMEGALY
     Route: 030
     Dates: start: 20160704
  6. DEURSIL [Concomitant]
     Active Substance: URSODIOL
     Route: 048
     Dates: start: 200003
  7. EUTIROX [Concomitant]
     Active Substance: LEVOTHYROXINE SODIUM
     Route: 048
     Dates: start: 20000327
  8. TRIATEC [RAMIPRIL] [Concomitant]
     Active Substance: RAMIPRIL
     Route: 048
  9. ANTRA [Concomitant]
     Active Substance: OMEPRAZOLE
     Route: 048
     Dates: start: 20161024
  10. XARENEL [Concomitant]
     Route: 048
     Dates: start: 20160509
  11. CORTONE [Concomitant]
     Active Substance: CORTISONE ACETATE
     Route: 048
     Dates: start: 20000216

REACTIONS (5)
  - Diabetes mellitus [Not Recovered/Not Resolved]
  - Blood 25-hydroxycholecalciferol increased [Unknown]
  - Insulin-like growth factor increased [Unknown]
  - Blood cholesterol decreased [Unknown]
  - Blood prolactin decreased [Unknown]

NARRATIVE: CASE EVENT DATE: 20160926
